FAERS Safety Report 13170547 (Version 4)
Quarter: 2018Q1

REPORT INFORMATION
  Report Type: Report from Study
  Country: US (occurrence: US)
  Receive Date: 20170201
  Receipt Date: 20180216
  Transmission Date: 20180508
  Serious: Yes (Hospitalization, Other)
  Sender: FDA-Public Use
  Company Number: US-ALEXION PHARMACEUTICALS INC.-A201700766

PATIENT
  Age: 63 Year
  Sex: Female
  Weight: 94.3 kg

DRUGS (12)
  1. ADVIL [Concomitant]
     Active Substance: IBUPROFEN
     Indication: PAIN
     Dosage: UNK, PRN
     Route: 065
  2. COUMADIN [Concomitant]
     Active Substance: WARFARIN SODIUM
     Indication: PRODUCT USED FOR UNKNOWN INDICATION
     Route: 065
  3. ESOMEPRAZOLE [Concomitant]
     Active Substance: ESOMEPRAZOLE
     Indication: PRODUCT USED FOR UNKNOWN INDICATION
     Route: 065
  4. SOLIRIS [Suspect]
     Active Substance: ECULIZUMAB
     Indication: PAROXYSMAL NOCTURNAL HAEMOGLOBINURIA
     Dosage: 600 MG, QW
     Route: 042
     Dates: start: 20120822, end: 20120912
  5. VITAMIN B12 [Concomitant]
     Active Substance: CYANOCOBALAMIN
     Indication: SUPPLEMENTATION THERAPY
     Route: 065
  6. FOLIC ACID. [Concomitant]
     Active Substance: FOLIC ACID
     Indication: SUPPLEMENTATION THERAPY
     Route: 065
  7. ACETAMINOPHEN. [Concomitant]
     Active Substance: ACETAMINOPHEN
     Indication: PAIN
     Route: 065
  8. SOLIRIS [Suspect]
     Active Substance: ECULIZUMAB
     Dosage: 900 MG, Q2W
     Route: 042
     Dates: start: 20120919
  9. AMITRIPTYLINE [Concomitant]
     Active Substance: AMITRIPTYLINE
     Indication: PRODUCT USED FOR UNKNOWN INDICATION
     Route: 065
  10. FERROUS SULFATE. [Concomitant]
     Active Substance: FERROUS SULFATE
     Indication: SUPPLEMENTATION THERAPY
     Route: 065
  11. IBUPROFEN W/PARACETAMOL [Concomitant]
     Indication: PRODUCT USED FOR UNKNOWN INDICATION
     Route: 065
  12. METHOCARBAMOL. [Concomitant]
     Active Substance: METHOCARBAMOL
     Indication: PRODUCT USED FOR UNKNOWN INDICATION
     Route: 065

REACTIONS (41)
  - Neutrophil count decreased [Unknown]
  - Hypersensitivity [Recovered/Resolved]
  - Headache [Unknown]
  - Haemorrhoids [Unknown]
  - Red blood cell count decreased [Unknown]
  - Monocyte percentage increased [Unknown]
  - Abdominal pain upper [Unknown]
  - Viral infection [Recovered/Resolved]
  - Inappropriate schedule of drug administration [Unknown]
  - Pain [Unknown]
  - Mean cell haemoglobin decreased [Unknown]
  - Hepatic cirrhosis [Unknown]
  - Haemoglobin decreased [Unknown]
  - Haematocrit decreased [Unknown]
  - Melaena [Unknown]
  - Mean cell haemoglobin concentration decreased [Unknown]
  - Platelet count decreased [Unknown]
  - Lymphocyte count decreased [Unknown]
  - Intravascular haemolysis [Unknown]
  - Chest pain [Unknown]
  - Hypoaesthesia [Unknown]
  - Hepatic pain [Not Recovered/Not Resolved]
  - Cholecystitis [Unknown]
  - Blood lactate dehydrogenase increased [Unknown]
  - Reticulocyte percentage increased [Unknown]
  - Blood osmolarity decreased [Unknown]
  - Splenomegaly [Unknown]
  - Chest discomfort [Not Recovered/Not Resolved]
  - Haemolysis [Unknown]
  - Pyrexia [Unknown]
  - Vitreous floaters [Unknown]
  - White blood cell count decreased [Unknown]
  - Mean platelet volume increased [Unknown]
  - Eosinophil percentage decreased [Unknown]
  - Blood alkaline phosphatase increased [Unknown]
  - Carbon dioxide increased [Unknown]
  - Spinal cord haematoma [Unknown]
  - Dizziness [Unknown]
  - Liver function test increased [Recovering/Resolving]
  - Red cell distribution width increased [Unknown]
  - Anion gap decreased [Unknown]

NARRATIVE: CASE EVENT DATE: 20121017
